FAERS Safety Report 8447997-0 (Version None)
Quarter: 2012Q2

REPORT INFORMATION
  Report Type: 
  Country: None (occurrence: None)
  Receive Date: 20120619
  Receipt Date: 20120614
  Transmission Date: 20120825
  Serious: Yes (Other)
  Sender: FDA-Public Use
  Company Number: US-PFIZER INC-2012129235

PATIENT
  Sex: Female
  Weight: 68.027 kg

DRUGS (3)
  1. PROCARDIA XL [Concomitant]
     Dosage: UNK
  2. LIPITOR [Suspect]
     Indication: BLOOD CHOLESTEROL INCREASED
     Dosage: 40 MG, 1X/DAY
     Route: 048
  3. DILANTIN [Concomitant]
     Dosage: UNK

REACTIONS (6)
  - CARDIAC DISORDER [None]
  - UPPER LIMB FRACTURE [None]
  - ARTERIAL OCCLUSIVE DISEASE [None]
  - RIB FRACTURE [None]
  - HEART RATE DECREASED [None]
  - FALL [None]
